FAERS Safety Report 22522737 (Version 8)
Quarter: 2025Q4

REPORT INFORMATION
  Report Type: Report from Study
  Country: US (occurrence: US)
  Receive Date: 20230605
  Receipt Date: 20251008
  Transmission Date: 20260118
  Serious: Yes (Hospitalization, Other)
  Sender: ABBVIE
  Company Number: US-ABBVIE-5276186

PATIENT
  Age: 87 Year
  Sex: Female
  Weight: 54.431 kg

DRUGS (3)
  1. IMBRUVICA [Suspect]
     Active Substance: IBRUTINIB
     Indication: Chronic lymphocytic leukaemia
     Dosage: FORM STRENGTH: 140 MG
     Route: 048
     Dates: start: 201804
  2. IMBRUVICA [Suspect]
     Active Substance: IBRUTINIB
     Indication: Chronic lymphocytic leukaemia
     Dosage: FORM STRENGTH: 140 MG
     Route: 048
     Dates: start: 20170605
  3. IMBRUVICA [Suspect]
     Active Substance: IBRUTINIB
     Indication: Chronic lymphocytic leukaemia
     Dosage: FORM STRENGTH: 140 MG
     Route: 048
     Dates: start: 201706

REACTIONS (7)
  - Fall [Recovering/Resolving]
  - Arthralgia [Unknown]
  - Gait disturbance [Unknown]
  - Depressed mood [Unknown]
  - Peripheral swelling [Unknown]
  - Hip fracture [Unknown]
  - Hypoacusis [Unknown]

NARRATIVE: CASE EVENT DATE: 20230521
